FAERS Safety Report 25184148 (Version 1)
Quarter: 2025Q2

REPORT INFORMATION
  Report Type: Spontaneous
  Country: US (occurrence: None)
  Receive Date: 20250410
  Receipt Date: 20250410
  Transmission Date: 20250716
  Serious: Yes (Hospitalization)
  Sender: FDA-CTU
  Company Number: None

PATIENT
  Age: 78 Year
  Sex: Male
  Weight: 93 kg

DRUGS (5)
  1. DARATUMUMAB\HYALURONIDASE-FIHJ [Suspect]
     Active Substance: DARATUMUMAB\HYALURONIDASE-FIHJ
     Indication: Product used for unknown indication
     Dates: end: 20241217
  2. DEXAMETHASONE [Suspect]
     Active Substance: DEXAMETHASONE
     Dates: end: 20241119
  3. LENALIDOMIDE [Suspect]
     Active Substance: LENALIDOMIDE
     Dates: end: 20241217
  4. XARELTO [Suspect]
     Active Substance: RIVAROXABAN
  5. ASPIRIN [Suspect]
     Active Substance: ASPIRIN

REACTIONS (7)
  - Hypotension [None]
  - Dizziness [None]
  - Haemoglobin decreased [None]
  - Therapy cessation [None]
  - Hiatus hernia [None]
  - Duodenitis [None]
  - Diverticulum intestinal [None]

NARRATIVE: CASE EVENT DATE: 20241219
